FAERS Safety Report 6920330-9 (Version None)
Quarter: 2010Q3

REPORT INFORMATION
  Report Type: 
  Country: None (occurrence: None)
  Receive Date: 20100809
  Receipt Date: 20100726
  Transmission Date: 20110219
  Serious: Yes (Hospitalization, Other)
  Sender: FDA-Public Use
  Company Number: 7012294

PATIENT
  Age: 43 Year
  Sex: Male

DRUGS (1)
  1. REBIF [Suspect]
     Indication: PRODUCT USED FOR UNKNOWN INDICATION
     Dosage: 44 MCG, 3 IN 1 WK, SUBCUTANEOUS
     Route: 058
     Dates: start: 20061004

REACTIONS (8)
  - AGGRESSION [None]
  - ANGER [None]
  - ATROPHY [None]
  - CLOSTRIDIAL INFECTION [None]
  - OEDEMA PERIPHERAL [None]
  - PAIN [None]
  - SPEECH DISORDER [None]
  - TESTICULAR HAEMORRHAGE [None]
